FAERS Safety Report 6304632-5 (Version None)
Quarter: 2009Q3

REPORT INFORMATION
  Report Type: 
  Country: None (occurrence: None)
  Receive Date: 20090811
  Receipt Date: 20090803
  Transmission Date: 20100115
  Serious: Yes (Other)
  Sender: FDA-Public Use
  Company Number: FR-JNJFOC-20090800997

PATIENT
  Sex: Female

DRUGS (15)
  1. HALDOL [Suspect]
     Indication: AGITATION
     Route: 042
  2. LASIX [Suspect]
     Indication: RENAL IMPAIRMENT
     Route: 042
  3. UMULINE [Suspect]
     Indication: DIABETES MELLITUS
     Route: 042
  4. CALCIPARINE [Suspect]
     Indication: THROMBOSIS PROPHYLAXIS
     Route: 058
  5. APROVEL [Concomitant]
     Route: 065
  6. NOCTAMIDE [Concomitant]
     Route: 065
  7. TAHOR [Concomitant]
     Route: 065
  8. LERCAN [Concomitant]
     Route: 065
  9. LANTUS [Concomitant]
     Route: 065
  10. NOVORAPID [Concomitant]
     Route: 065
  11. RIVOTRIL [Concomitant]
     Route: 065
  12. NEXIUM [Concomitant]
     Route: 065
  13. NICARDIPINE HCL [Concomitant]
     Route: 065
  14. MORPHINE [Concomitant]
     Route: 065
  15. DAFALGAN [Concomitant]
     Route: 065

REACTIONS (1)
  - THROMBOCYTOPENIA [None]
